FAERS Safety Report 8951158 (Version 1)
Quarter: 2012Q4

REPORT INFORMATION
  Report Type: 
  Country: US (occurrence: None)
  Receive Date: 20121204
  Receipt Date: 20121204
  Transmission Date: 20130627
  Serious: No
  Sender: FDA-Public Use
  Company Number: None

PATIENT
  Sex: Male
  Weight: 96 kg

DRUGS (2)
  1. BEVACIZUMAB [Suspect]
  2. CAPECITABINE [Suspect]

REACTIONS (2)
  - Blood pressure systolic increased [None]
  - Epistaxis [None]
